FAERS Safety Report 16373199 (Version 1)
Quarter: 2019Q2

REPORT INFORMATION
  Report Type: Spontaneous
  Country: US (occurrence: US)
  Receive Date: 20190424
  Receipt Date: 20190424
  Transmission Date: 20190711
  Serious: Yes (Hospitalization)
  Sender: FDA-Public Use
  Company Number: None

PATIENT
  Age: 43 Year
  Sex: Male
  Weight: 143.15 kg

DRUGS (2)
  1. RITUXIMAB. [Suspect]
     Active Substance: RITUXIMAB
     Indication: RHEUMATOID ARTHRITIS
     Route: 042
     Dates: start: 20190327, end: 20190327
  2. RITUXIMAB. [Suspect]
     Active Substance: RITUXIMAB
     Indication: ATRIAL FIBRILLATION
     Route: 042
     Dates: start: 20190327, end: 20190327

REACTIONS (4)
  - Oropharyngeal discomfort [None]
  - Throat irritation [None]
  - Pruritus [None]
  - Throat lesion [None]

NARRATIVE: CASE EVENT DATE: 20190327
